FAERS Safety Report 8672496 (Version 2)
Quarter: 2012Q4

REPORT INFORMATION
  Report Type: 
  Country: ID (occurrence: ID)
  Receive Date: 20120719
  Receipt Date: 20121214
  Transmission Date: 20130627
  Serious: Yes (Hospitalization)
  Sender: FDA-Public Use
  Company Number: ID-ASTELLAS-2012JP006460

PATIENT
  Age: 65 Year
  Sex: Female

DRUGS (2)
  1. SOLIFENACIN [Suspect]
     Dosage: 10 mg, UID/QD
     Route: 048
     Dates: start: 20120706
  2. OFLOXACIN [Concomitant]
     Route: 065

REACTIONS (3)
  - Somnolence [Recovered/Resolved]
  - Bradycardia [Recovered/Resolved]
  - Apathy [Recovered/Resolved]
